FAERS Safety Report 10736974 (Version 1)
Quarter: 2015Q1

REPORT INFORMATION
  Report Type: Spontaneous
  Country: US (occurrence: None)
  Receive Date: 20150122
  Receipt Date: 20150122
  Transmission Date: 20150721
  Serious: Yes (Hospitalization)
  Sender: FDA-Public Use
  Company Number: 2015-US-000529

PATIENT
  Age: 53 Year
  Sex: Male
  Weight: 75.7 kg

DRUGS (1)
  1. XYREM [Suspect]
     Active Substance: SODIUM OXYBATE
     Indication: SOMNOLENCE
     Route: 048
     Dates: start: 201109, end: 2011

REACTIONS (3)
  - Pneumothorax spontaneous [None]
  - Pneumonia [None]
  - Off label use [None]

NARRATIVE: CASE EVENT DATE: 201412
